FAERS Safety Report 16034548 (Version 4)
Quarter: 2019Q2

REPORT INFORMATION
  Report Type: Spontaneous
  Country: US (occurrence: US)
  Receive Date: 20190305
  Receipt Date: 20190527
  Transmission Date: 20190711
  Serious: Yes (Other)
  Sender: FDA-Public Use
  Company Number: US-PFIZER INC-2019094826

PATIENT
  Age: 80 Year
  Sex: Female

DRUGS (2)
  1. ALDACTONE [Suspect]
     Active Substance: SPIRONOLACTONE
     Dosage: 25 MG, UNK
  2. AMLODIPINE BESILATE [Suspect]
     Active Substance: AMLODIPINE BESYLATE
     Dosage: 2.5 MG, UNK

REACTIONS (6)
  - Gait disturbance [Unknown]
  - Asthenia [Unknown]
  - Drug intolerance [Unknown]
  - Incorrect dose administered [Unknown]
  - Hypotension [Unknown]
  - Blood pressure fluctuation [Unknown]
